FAERS Safety Report 17028577 (Version 1)
Quarter: 2019Q4

REPORT INFORMATION
  Report Type: Spontaneous
  Country: GB (occurrence: GB)
  Receive Date: 20191113
  Receipt Date: 20191113
  Transmission Date: 20200122
  Serious: Yes (Other)
  Sender: FDA-Public Use
  Company Number: GB-CANTON LABORATORIES, LLC-2076833

PATIENT
  Age: 70 Year
  Sex: Female
  Weight: 54 kg

DRUGS (7)
  1. LAXIDO (MACROGOL 3350, POTASSIUM CHLORIDE, SODIUM CHLORIDE, SODIUM HYD [Concomitant]
     Route: 065
     Dates: start: 20180503
  2. COCODAMOL [Concomitant]
     Active Substance: ACETAMINOPHEN\CODEINE PHOSPHATE
     Route: 065
     Dates: start: 20180503, end: 20180515
  3. OMEPRAZOLE. [Concomitant]
     Active Substance: OMEPRAZOLE
     Route: 065
     Dates: start: 20170918
  4. SIMVASTATIN. [Concomitant]
     Active Substance: SIMVASTATIN
     Route: 065
     Dates: start: 20171106
  5. VAGIFEM [Concomitant]
     Active Substance: ESTRADIOL
     Route: 065
     Dates: start: 20160905
  6. NAPROSYN [Suspect]
     Active Substance: NAPROXEN
     Indication: PRODUCT USED FOR UNKNOWN INDICATION
     Route: 065
     Dates: start: 20180329
  7. CLOPIDOGREL [Concomitant]
     Active Substance: CLOPIDOGREL BISULFATE
     Route: 065
     Dates: start: 20180619

REACTIONS (3)
  - Drug hypersensitivity [Recovered/Resolved]
  - Upper gastrointestinal haemorrhage [Unknown]
  - Ulcer [Unknown]

NARRATIVE: CASE EVENT DATE: 20180802
